FAERS Safety Report 21467947 (Version 1)
Quarter: 2022Q4

REPORT INFORMATION
  Report Type: Spontaneous
  Country: US (occurrence: US)
  Receive Date: 20221017
  Receipt Date: 20221017
  Transmission Date: 20230112
  Serious: No
  Sender: FDA-Public Use
  Company Number: US-ALLERGAN-2226294US

PATIENT
  Sex: Female

DRUGS (2)
  1. LINZESS [Suspect]
     Active Substance: LINACLOTIDE
     Indication: Product used for unknown indication
     Dosage: UNK
  2. TYMLOS [Concomitant]
     Active Substance: ABALOPARATIDE
     Indication: Malabsorption
     Dosage: 80 ?G, QD
     Route: 058
     Dates: start: 20220127

REACTIONS (2)
  - Urticaria [Unknown]
  - Drug hypersensitivity [Unknown]
